FAERS Safety Report 7513520-8 (Version None)
Quarter: 2011Q2

REPORT INFORMATION
  Report Type: 
  Country: None (occurrence: None)
  Receive Date: 20110531
  Receipt Date: 20110524
  Transmission Date: 20111010
  Serious: Yes (Death, Other)
  Sender: FDA-Public Use
  Company Number: US-ASTRAZENECA-2011SE30690

PATIENT
  Age: 31857 Day
  Sex: Male

DRUGS (8)
  1. SEROQUEL [Suspect]
     Indication: AGITATION
     Route: 048
     Dates: start: 20110108
  2. SEROQUEL [Suspect]
     Route: 048
     Dates: start: 20110126
  3. SEROQUEL [Suspect]
     Route: 048
     Dates: start: 20110126
  4. SEROQUEL [Suspect]
     Route: 048
     Dates: start: 20110126
  5. LISINOPRIL [Concomitant]
  6. SEROQUEL [Suspect]
     Indication: SLEEP DISORDER
     Route: 048
     Dates: start: 20110108
  7. ARICEPT [Concomitant]
  8. SEROQUEL [Suspect]
     Indication: FEELING OF RELAXATION
     Route: 048
     Dates: start: 20110108

REACTIONS (3)
  - COMA [None]
  - OFF LABEL USE [None]
  - MYOCARDIAL INFARCTION [None]
